FAERS Safety Report 7783917-X (Version None)
Quarter: 2011Q3

REPORT INFORMATION
  Report Type: 
  Country: None (occurrence: None)
  Receive Date: 20110928
  Receipt Date: 20110915
  Transmission Date: 20111222
  Serious: Yes (Hospitalization)
  Sender: FDA-Public Use
  Company Number: US-VIIV HEALTHCARE LIMITED-B0750453A

PATIENT
  Age: 69 Year
  Sex: Male
  Weight: 110.9 kg

DRUGS (8)
  1. ADVAIR DISKUS 100/50 [Concomitant]
     Dosage: 1PUFF TWICE PER DAY
  2. METFORMIN HCL [Concomitant]
     Dosage: 500MG PER DAY
  3. SPIRONOLACTONE [Concomitant]
     Indication: DYSPNOEA
     Dosage: 100MG PER DAY
  4. TRUVADA [Concomitant]
     Indication: HIV INFECTION
  5. ASPIRIN [Concomitant]
     Dosage: 81MG PER DAY
  6. LIPITOR [Concomitant]
     Dosage: 20MG PER DAY
  7. COMBIVENT [Concomitant]
     Dosage: 2PUFF FOUR TIMES PER DAY
  8. SELZENTRY [Suspect]
     Indication: HIV INFECTION
     Dosage: 600MG PER DAY
     Route: 048

REACTIONS (2)
  - ATRIAL FIBRILLATION [None]
  - MYOCARDIAL INFARCTION [None]
